FAERS Safety Report 5971267-3 (Version None)
Quarter: 2008Q4

REPORT INFORMATION
  Report Type: 
  Country: None (occurrence: None)
  Receive Date: 20081128
  Receipt Date: 20081117
  Transmission Date: 20090506
  Serious: Yes (Death, Other)
  Sender: FDA-Public Use
  Company Number: JP-PFIZER INC-2008073625

PATIENT
  Sex: Male
  Weight: 60 kg

DRUGS (9)
  1. SUTENT [Suspect]
     Indication: RENAL CELL CARCINOMA
     Dosage: DAILY DOSE:50MG-FREQ:DAILY
     Route: 048
     Dates: start: 20080814, end: 20080829
  2. MOBIC [Concomitant]
     Route: 048
     Dates: end: 20080902
  3. NOVAMIN [Concomitant]
     Route: 048
     Dates: end: 20080902
  4. PURSENNID [Concomitant]
     Route: 048
     Dates: end: 20080902
  5. MYSLEE [Concomitant]
     Route: 048
     Dates: end: 20080902
  6. OXYCONTIN [Concomitant]
     Route: 048
     Dates: end: 20080829
  7. MAGNESIUM OXIDE [Concomitant]
     Route: 048
     Dates: end: 20080902
  8. LAFUTIDINE [Concomitant]
     Route: 048
     Dates: end: 20080902
  9. LORAZEPAM [Concomitant]
     Route: 048
     Dates: end: 20080831

REACTIONS (3)
  - BONE MARROW FAILURE [None]
  - DISEASE PROGRESSION [None]
  - RENAL CELL CARCINOMA [None]
